FAERS Safety Report 9958476 (Version 2)
Quarter: 2014Q2

REPORT INFORMATION
  Report Type: Report from Study
  Country: DE (occurrence: DE)
  Receive Date: 20140305
  Receipt Date: 20140428
  Transmission Date: 20141212
  Serious: Yes (Other)
  Sender: FDA-Public Use
  Company Number: DE-BEH-2014040821

PATIENT
  Age: 73 Year
  Sex: Male
  Weight: 54 kg

DRUGS (9)
  1. PRIVIGEN [Suspect]
     Indication: SECONDARY IMMUNODEFICIENCY
     Dosage: INFUSION RATE MIN/MAX: 1.54 ML/MIN
     Route: 042
     Dates: start: 20131113, end: 20131113
  2. PRIVIGEN [Suspect]
     Dosage: INFUSION RATE MIN/MAX: 1.67 ML/MIN
     Route: 042
     Dates: start: 20140108, end: 20140108
  3. PRIVIGEN [Suspect]
     Dosage: INFUSION RATE MIN/MAX: 1.43 ML/MIN
     Route: 042
     Dates: start: 20140129, end: 20140129
  4. L THYROXIN [Concomitant]
  5. PALLADON [Concomitant]
  6. METFORMIN [Concomitant]
  7. FOLSAN [Concomitant]
  8. PREDNISOLUT [Concomitant]
     Indication: PREMEDICATION
  9. NEULASTA [Concomitant]
     Route: 058
     Dates: start: 20140129, end: 20140129

REACTIONS (4)
  - Cardiovascular disorder [Recovered/Resolved]
  - Vomiting [Recovered/Resolved]
  - Hyperhidrosis [Recovered/Resolved]
  - Body temperature decreased [Recovered/Resolved]
